FAERS Safety Report 5195729-4 (Version None)
Quarter: 2007Q1

REPORT INFORMATION
  Report Type: 
  Country: None (occurrence: None)
  Receive Date: 20070102
  Receipt Date: 20061220
  Transmission Date: 20070707
  Serious: Yes (Death, Life-Threatening)
  Sender: FDA-Public Use
  Company Number: JP-ROCHE-470468

PATIENT
  Age: 64 Year
  Sex: Male
  Weight: 62 kg

DRUGS (5)
  1. ROCEPHIN [Suspect]
     Indication: MUSCLE ABSCESS
     Route: 041
     Dates: start: 20061004, end: 20061023
  2. FUTHAN [Concomitant]
     Route: 042
     Dates: start: 20061012, end: 20061020
  3. NEUART [Concomitant]
     Route: 042
     Dates: start: 20061012, end: 20061019
  4. PURSENNID [Concomitant]
     Route: 063
  5. INDOMETHACIN [Concomitant]
     Route: 054

REACTIONS (2)
  - AGRANULOCYTOSIS [None]
  - HEPATIC FAILURE [None]
